FAERS Safety Report 12600381 (Version 2)
Quarter: 2016Q3

REPORT INFORMATION
  Report Type: Report from Study
  Country: BR (occurrence: BR)
  Receive Date: 20160727
  Receipt Date: 20160805
  Transmission Date: 20161109
  Serious: Yes (Other)
  Sender: FDA-Public Use
  Company Number: BR-JNJFOC-20160720147

PATIENT
  Age: 19 Year
  Sex: Female

DRUGS (4)
  1. REMICADE [Suspect]
     Active Substance: INFLIXIMAB
     Indication: CROHN^S DISEASE
     Dosage: PATIENT STARTED TREATMENT 4 YEARS AGO
     Route: 042
  2. MORPHINE [Suspect]
     Active Substance: MORPHINE
     Indication: PAIN
     Route: 065
     Dates: start: 20160701
  3. CIPROFLOXACIN. [Suspect]
     Active Substance: CIPROFLOXACIN
     Indication: PRODUCT USED FOR UNKNOWN INDICATION
     Route: 065
  4. CALCIUM [Concomitant]
     Active Substance: CALCIUM
     Route: 065

REACTIONS (7)
  - Diarrhoea [Unknown]
  - Anal abscess [Recovered/Resolved]
  - Weight decreased [Unknown]
  - Abscess intestinal [Unknown]
  - Visual impairment [Unknown]
  - Procedural pain [Unknown]
  - Alopecia [Unknown]

NARRATIVE: CASE EVENT DATE: 20160627
